FAERS Safety Report 16704061 (Version 1)
Quarter: 2019Q3

REPORT INFORMATION
  Report Type: Spontaneous
  Country: NL (occurrence: FR)
  Receive Date: 20190814
  Receipt Date: 20190814
  Transmission Date: 20191004
  Serious: Yes (Hospitalization, Other)
  Sender: FDA-Public Use
  Company Number: FR-FRESENIUS KABI-FK201908749

PATIENT
  Age: 59 Year
  Sex: Female
  Weight: 66 kg

DRUGS (28)
  1. ATORVASTATIN CALCIUM. [Suspect]
     Active Substance: ATORVASTATIN CALCIUM
     Indication: HYPERCHOLESTEROLAEMIA
     Dosage: 10 MG, QD
     Route: 048
     Dates: start: 201812, end: 20190526
  2. FUROSEMIDE. [Suspect]
     Active Substance: FUROSEMIDE
     Indication: HYPERTROPHIC CARDIOMYOPATHY
     Dosage: 40 MG, QD
     Route: 048
     Dates: start: 2008, end: 20190526
  3. MYCOPHENOLATE MOFETIL. [Suspect]
     Active Substance: MYCOPHENOLATE MOFETIL
     Indication: PROPHYLAXIS AGAINST TRANSPLANT REJECTION
     Dosage: 3000 MILLIGRAM PER DAY
     Route: 048
     Dates: start: 20190529, end: 20190608
  4. CICLOSPORIN [Suspect]
     Active Substance: CYCLOSPORINE
     Indication: PROPHYLAXIS AGAINST TRANSPLANT REJECTION
     Dosage: 400 MG, QD
     Route: 048
     Dates: start: 20190529
  5. ALLOPURINOL. [Suspect]
     Active Substance: ALLOPURINOL
     Indication: HYPERURICAEMIA
     Dosage: 1 DF, QD
     Route: 048
     Dates: start: 201812, end: 20190526
  6. SILDENAFIL CITRATE. [Suspect]
     Active Substance: SILDENAFIL CITRATE
     Indication: PULMONARY ARTERIAL HYPERTENSION
     Dosage: 60 MG, QD
     Route: 048
     Dates: start: 20190527, end: 20190605
  7. ENOXAPARIN SODIUM. [Suspect]
     Active Substance: ENOXAPARIN SODIUM
     Indication: THROMBOSIS PROPHYLAXIS
     Dosage: 8000 INTERNATIONAL UNIT PER DAY
     Route: 058
     Dates: start: 20190604, end: 20190614
  8. LEVOTHYROXINE SODIUM. [Suspect]
     Active Substance: LEVOTHYROXINE SODIUM
     Indication: HYPOTHYROIDISM
     Dosage: 106.25 MICROGRAM PER DAY
     Route: 048
     Dates: start: 2008
  9. NOREPINEPHRINE BITARTRATE. [Suspect]
     Active Substance: NOREPINEPHRINE BITARTRATE
     Indication: CIRCULATORY COLLAPSE
     Dosage: 1, UNK (1 MICROGRAM PER KILOGRAM EVERY 1 MINUTE )
     Route: 042
     Dates: start: 20190527, end: 20190612
  10. APIXABAN [Suspect]
     Active Substance: APIXABAN
     Indication: CEREBROVASCULAR ACCIDENT PROPHYLAXIS
     Route: 065
  11. MYCOPHENOLATE SODIUM [Suspect]
     Active Substance: MYCOPHENOLATE SODIUM
     Indication: PROPHYLAXIS AGAINST TRANSPLANT REJECTION
     Dosage: 720 MILLIGRAM, BID
     Route: 065
     Dates: start: 20190609, end: 20190621
  12. AMIODARONE HYDROCHLORIDE. [Suspect]
     Active Substance: AMIODARONE HYDROCHLORIDE
     Indication: ATRIAL FIBRILLATION
     Dosage: 200 MG, QD
     Route: 048
     Dates: start: 2008, end: 20190526
  13. APIXABAN [Suspect]
     Active Substance: APIXABAN
     Indication: ATRIAL FIBRILLATION
     Dosage: 5 MILLIGRAM, BID
     Route: 048
     Dates: start: 201812, end: 20190526
  14. MYCOPHENOLATE MOFETIL. [Suspect]
     Active Substance: MYCOPHENOLATE MOFETIL
     Dosage: 720-0-720
     Route: 048
     Dates: start: 20190609, end: 20190621
  15. AMIODARONE HYDROCHLORIDE. [Suspect]
     Active Substance: AMIODARONE HYDROCHLORIDE
     Indication: ATRIAL FIBRILLATION
     Dosage: 300 MG, QD
     Route: 042
     Dates: start: 20190529, end: 20190601
  16. REMIFENTANIL HYDROCHLORIDE. [Suspect]
     Active Substance: REMIFENTANIL HYDROCHLORIDE
     Indication: SEDATIVE THERAPY
     Dosage: 15 MICROGRAM/KILOGRAM, QH
     Route: 042
     Dates: start: 20190527, end: 20190530
  17. EPINEPHRINE. [Suspect]
     Active Substance: EPINEPHRINE
     Indication: CIRCULATORY COLLAPSE
     Dosage: 0.5 MICROGRAM/KILOGRAM (EVERY 1 MINUTE)
     Route: 042
     Dates: start: 20190527, end: 20190528
  18. PRAVASTATIN SODIUM. [Suspect]
     Active Substance: PRAVASTATIN SODIUM
     Indication: HYPERCHOLESTEROLAEMIA
     Dosage: 40 MG, QD
     Route: 048
     Dates: start: 20190527, end: 20190625
  19. ESOMEPRAZOLE MAGNESIUM. [Suspect]
     Active Substance: ESOMEPRAZOLE MAGNESIUM
     Indication: GASTROOESOPHAGEAL REFLUX DISEASE
     Dosage: 20 MILLIGRAM PER DAY
     Route: 048
     Dates: start: 20190527
  20. PROPOFOL (MANUFACTURER UNKNOWN) [Suspect]
     Active Substance: PROPOFOL
     Indication: SEDATIVE THERAPY
     Dosage: 100 MILLIGRAM, QH
     Route: 042
     Dates: start: 20190527, end: 20190530
  21. SPIRONOLACTONE. [Suspect]
     Active Substance: SPIRONOLACTONE
     Indication: HYPERTROPHIC CARDIOMYOPATHY
     Dosage: 25 MG, QD
     Route: 048
     Dates: start: 201902, end: 20190526
  22. HYDROCORTISONE SODIUM SUCCINATE [Suspect]
     Active Substance: HYDROCORTISONE SODIUM SUCCINATE
     Indication: ADRENAL INSUFFICIENCY
     Dosage: 150 MILLIGRAM PER DAY
     Route: 042
     Dates: start: 20190607
  23. ZOLPIDEM TARTRATE. [Suspect]
     Active Substance: ZOLPIDEM TARTRATE
     Indication: SLEEP DISORDER
     Dosage: 10 MILLIGRAM
     Route: 048
     Dates: start: 20190520, end: 20190526
  24. SULFAMETHOXAZOLE/TRIMETHOPRIM [Suspect]
     Active Substance: SULFAMETHOXAZOLE\TRIMETHOPRIM
     Indication: INFECTION PROPHYLAXIS
     Dosage: 1 DF, QD
     Route: 048
     Dates: start: 20190529
  25. VALACICLOVIR HYDROCHLORIDE [Suspect]
     Active Substance: VALACYCLOVIR HYDROCHLORIDE
     Indication: INFECTION PROPHYLAXIS
     Dosage: 500 MILLIGRAM, BID
     Route: 048
     Dates: start: 20190603
  26. DOBUTAMINE HYDROCHLORIDE. [Suspect]
     Active Substance: DOBUTAMINE HYDROCHLORIDE
     Indication: CIRCULATORY COLLAPSE
     Dosage: 7 MICROGRAM/KILOGRAM 9EVERY 1 MINUTE)
     Route: 042
     Dates: start: 20190527, end: 20190530
  27. SACUBITRIL VALSARTAN SODIUM HYDRATE [Suspect]
     Active Substance: SACUBITRIL\VALSARTAN
     Indication: HYPERTROPHIC CARDIOMYOPATHY
     Dosage: 2 DOSAGE FORM PER DAY
     Route: 048
     Dates: start: 20181220, end: 20190526
  28. PREDNISONE. [Suspect]
     Active Substance: PREDNISONE
     Indication: PROPHYLAXIS AGAINST TRANSPLANT REJECTION
     Dosage: 50 MG, QD
     Route: 048
     Dates: start: 20190527

REACTIONS (1)
  - Interstitial lung disease [Recovering/Resolving]

NARRATIVE: CASE EVENT DATE: 20190618
